FAERS Safety Report 11734649 (Version 1)
Quarter: 2015Q4

REPORT INFORMATION
  Report Type: Spontaneous
  Country: US (occurrence: US)
  Receive Date: 20151113
  Receipt Date: 20151113
  Transmission Date: 20160304
  Serious: No
  Sender: FDA-Public Use
  Company Number: US-DRREDDYS-USA/USA/14/0044523

PATIENT
  Sex: Female
  Weight: 58.7 kg

DRUGS (3)
  1. FAMOTIDINE OTC [Suspect]
     Active Substance: FAMOTIDINE
     Indication: GASTRITIS
     Route: 048
  2. FAMOTIDINE OTC [Suspect]
     Active Substance: FAMOTIDINE
     Indication: GASTRIC POLYPS
  3. CALCIUM WITH VITAMIN D [Concomitant]
     Active Substance: CALCIUM\VITAMIN D
     Indication: PRODUCT USED FOR UNKNOWN INDICATION
     Route: 065

REACTIONS (2)
  - Dizziness [Unknown]
  - Headache [Unknown]
